FAERS Safety Report 8818789 (Version 1)
Quarter: 2012Q4

REPORT INFORMATION
  Report Type: Spontaneous
  Country: US (occurrence: None)
  Receive Date: 20121005
  Receipt Date: 20121005
  Transmission Date: 20130627
  Serious: Yes (Life-Threatening, Hospitalization)
  Sender: FDA-Public Use
  Company Number: None

PATIENT
  Age: 60 Year
  Sex: Female
  Weight: 58.06 kg

DRUGS (1)
  1. DEPO MEDROL [Suspect]
     Dates: start: 20120810, end: 20120810

REACTIONS (10)
  - Malaise [None]
  - Pyrexia [None]
  - Nausea [None]
  - Vomiting [None]
  - Headache [None]
  - Dizziness [None]
  - Dysarthria [None]
  - Meningitis [None]
  - Product contamination microbial [None]
  - Pain [None]
